FAERS Safety Report 5893173-5 (Version None)
Quarter: 2008Q3

REPORT INFORMATION
  Report Type: 
  Country: None (occurrence: None)
  Receive Date: 20080923
  Receipt Date: 20070709
  Transmission Date: 20090109
  Serious: No
  Sender: FDA-Public Use
  Company Number: US-ASTRAZENECA-2007UW16026

PATIENT
  Age: 38 Year
  Sex: Male

DRUGS (3)
  1. SEROQUEL [Suspect]
     Route: 048
  2. EFFEXOR [Concomitant]
     Dosage: 400 MG TO 500 MG DAILY
     Route: 048
  3. OPIATES [Concomitant]
     Indication: BACK PAIN

REACTIONS (2)
  - DISORIENTATION [None]
  - MENTAL DISORDER [None]
